FAERS Safety Report 9959299 (Version 2)
Quarter: 2014Q1

REPORT INFORMATION
  Report Type: Spontaneous
  Country: US (occurrence: None)
  Receive Date: 20140227
  Receipt Date: 20140326
  Transmission Date: 20141002
  Serious: Yes (Other)
  Sender: FDA-Public Use
  Company Number: 2014SA022086

PATIENT
  Age: 78 Year
  Sex: Female

DRUGS (2)
  1. CAPSAICIN [Suspect]
     Indication: ARTHRALGIA
     Dates: start: 20140215
  2. CEFAZOLIN [Concomitant]

REACTIONS (3)
  - Chemical injury [None]
  - Product odour abnormal [None]
  - Blister [None]
